FAERS Safety Report 16731897 (Version 4)
Quarter: 2022Q1

REPORT INFORMATION
  Report Type: Report from Study
  Country: US (occurrence: US)
  Receive Date: 20190822
  Receipt Date: 20220119
  Transmission Date: 20220423
  Serious: Yes (Hospitalization, Other)
  Sender: FDA-Public Use
  Company Number: US-BRISTOL-MYERS SQUIBB COMPANY-BMS-2019-035666

PATIENT
  Age: 70 Year
  Sex: Male
  Weight: 81.7 kg

DRUGS (24)
  1. NIVOLUMAB [Suspect]
     Active Substance: NIVOLUMAB
     Indication: Pancreatic carcinoma metastatic
     Dosage: 240 MILLIGRAM
     Route: 065
     Dates: start: 20190205
  2. INVESTIGATIONAL PRODUCT [Suspect]
     Active Substance: INVESTIGATIONAL PRODUCT
     Indication: Pancreatic carcinoma metastatic
     Dosage: 0.3 MILLIGRAM/KILOGRAM
     Route: 065
     Dates: start: 20190207
  3. GEMCITABINE HYDROCHLORIDE [Suspect]
     Active Substance: GEMCITABINE HYDROCHLORIDE
     Indication: Pancreatic carcinoma metastatic
     Dosage: 1000 MILLIGRAM/SQ. METER
     Route: 065
     Dates: start: 20190205
  4. PACLITAXEL [Suspect]
     Active Substance: PACLITAXEL
     Indication: Pancreatic carcinoma metastatic
     Dosage: 125 MILLIGRAM/SQ. METER
     Route: 065
     Dates: start: 20190205
  5. BISMUTH SUBSALICYLATE [Concomitant]
     Active Substance: BISMUTH SUBSALICYLATE
     Indication: Dyspepsia
     Dosage: 15 MILLILITER
     Route: 048
  6. IBUPROFEN [Concomitant]
     Active Substance: IBUPROFEN
     Indication: Pain
     Dosage: 200 MILLIGRAM
     Route: 048
  7. LACTULOSE [Concomitant]
     Active Substance: LACTULOSE
     Indication: Product used for unknown indication
     Dosage: 15 MILLIGRAM
     Route: 048
     Dates: start: 20190206
  8. LIDOCAINE PRILOCAINE BIOGARAN [Concomitant]
     Indication: Product used for unknown indication
     Dosage: UNK
     Route: 061
     Dates: start: 20190326
  9. LORAZEPAM [Concomitant]
     Active Substance: LORAZEPAM
     Indication: Anxiety
     Dosage: 0.5 MILLIGRAM
     Route: 048
     Dates: start: 20190204
  10. CANNABIS SATIVA SUBSP. INDICA TOP [Concomitant]
     Active Substance: CANNABIS SATIVA SUBSP. INDICA TOP
     Indication: Product used for unknown indication
     Dosage: UNK
     Route: 065
  11. MORPHINE [Concomitant]
     Active Substance: MORPHINE
     Indication: Pain
     Dosage: 15 MILLIGRAM
     Route: 048
     Dates: start: 20190325
  12. NALOXEGOL [Concomitant]
     Active Substance: NALOXEGOL
     Indication: Product used for unknown indication
     Dosage: 25 MILLIGRAM
     Route: 048
     Dates: start: 20190204
  13. NALOXONE [Concomitant]
     Active Substance: NALOXONE
     Indication: Product used for unknown indication
     Dosage: 4 MILLIGRAM
     Route: 065
     Dates: start: 20190204
  14. ONDANSETRON [Concomitant]
     Active Substance: ONDANSETRON
     Indication: Nausea
     Dosage: 8 MILLIGRAM
     Route: 048
     Dates: start: 20190129
  15. POLYETHYLENE GLYCOLS [Concomitant]
     Active Substance: POLYETHYLENE GLYCOLS
     Indication: Constipation
     Dosage: 17 GRAM
     Route: 048
     Dates: start: 20190123
  16. PROCHLORPERAZINE [Concomitant]
     Active Substance: PROCHLORPERAZINE
     Indication: Nausea
     Dosage: 10 MILLIGRAM
     Route: 048
     Dates: start: 20190204
  17. PROCHLORPERAZINE [Concomitant]
     Active Substance: PROCHLORPERAZINE
     Indication: Vomiting
  18. SENNA LEAF [Concomitant]
     Active Substance: SENNA LEAF
     Indication: Constipation
     Dosage: 8.6 MILLIGRAM
     Route: 048
     Dates: start: 20190123
  19. ENOXAPARIN [Concomitant]
     Active Substance: ENOXAPARIN
     Indication: Pulmonary embolism
     Dosage: 120 MILLIGRAM
     Route: 065
     Dates: start: 20190220, end: 20190328
  20. ACETAMINOPHEN [Concomitant]
     Active Substance: ACETAMINOPHEN
     Indication: Product used for unknown indication
     Dosage: 500 MILLIGRAM
     Route: 048
     Dates: start: 20190131
  21. IOHEXOL [Concomitant]
     Active Substance: IOHEXOL
     Indication: Product used for unknown indication
     Dosage: 150 MILLILITER
     Route: 042
     Dates: start: 20190326, end: 20190326
  22. IOHEXOL [Concomitant]
     Active Substance: IOHEXOL
     Indication: Product used for unknown indication
     Dosage: 500 MILLILITER
     Route: 048
     Dates: start: 20190326, end: 20190326
  23. MIDAZOLAM [Concomitant]
     Active Substance: MIDAZOLAM
     Indication: Product used for unknown indication
     Dosage: 1 DOSAGE FORM
     Route: 065
     Dates: start: 20190313, end: 20190313
  24. FENTANYL [Concomitant]
     Active Substance: FENTANYL
     Indication: Product used for unknown indication
     Dosage: 1 DOSAGE FORM
     Route: 065
     Dates: start: 20190313, end: 20190313

REACTIONS (3)
  - Hypoxia [Recovered/Resolved]
  - Pericardial effusion [Unknown]
  - Pulmonary embolism [Unknown]

NARRATIVE: CASE EVENT DATE: 20190326
